FAERS Safety Report 8814408 (Version 1)
Quarter: 2012Q4

REPORT INFORMATION
  Report Type: 
  Country: US (occurrence: None)
  Receive Date: 20120927
  Receipt Date: 20120927
  Transmission Date: 20130627
  Serious: No
  Sender: FDA-Public Use
  Company Number: None

PATIENT
  Age: 41 Year
  Sex: Female
  Weight: 60.5 kg

DRUGS (5)
  1. GAMMAGARD [Suspect]
     Dosage: 5 gram________ IVPB; 55 gram 6/4/12 ; 
60 gm 6/5/12 IVPB
     Dates: start: 20120604
  2. GAMMAGARD [Suspect]
     Dosage: 60 gram 6/5/12 IVIG
     Dates: start: 20120604
  3. LEVOTHYROXINE [Concomitant]
  4. PREGABALIN [Concomitant]
  5. LEVBID [Concomitant]

REACTIONS (1)
  - Headache [None]
